FAERS Safety Report 4887910-6 (Version None)
Quarter: 2006Q1

REPORT INFORMATION
  Report Type: 
  Country: None (occurrence: None)
  Receive Date: 20060123
  Receipt Date: 20051220
  Transmission Date: 20060701
  Serious: Yes (Hospitalization)
  Sender: FDA-Public Use
  Company Number: JP-MERCK-0512USA03475

PATIENT
  Age: 79 Year
  Sex: Male
  Weight: 64 kg

DRUGS (9)
  1. SINGULAIR [Suspect]
     Indication: ASTHMA
     Route: 048
     Dates: start: 20050323, end: 20050328
  2. HARNAL [Concomitant]
     Indication: BENIGN PROSTATIC HYPERPLASIA
     Route: 048
     Dates: start: 20040324
  3. UNIPHYL [Concomitant]
     Indication: ASTHMA
     Route: 048
     Dates: start: 19980701, end: 20050325
  4. IPD [Concomitant]
     Indication: ASTHMA
     Route: 048
  5. SEREVENT [Concomitant]
     Indication: ASTHMA
     Route: 055
     Dates: start: 20030129
  6. PULMICORT [Concomitant]
     Indication: ASTHMA
     Route: 055
     Dates: start: 20030129
  7. SPIRIVA [Concomitant]
     Indication: ASTHMA
     Route: 055
     Dates: start: 20050323
  8. MEPTIN [Concomitant]
     Indication: ASTHMA
     Route: 065
  9. BENZALIN [Concomitant]
     Indication: INSOMNIA
     Route: 048
     Dates: start: 20041201, end: 20050325

REACTIONS (4)
  - ALLERGIC GRANULOMATOUS ANGIITIS [None]
  - DYSSTASIA [None]
  - LUNG INFILTRATION [None]
  - PYREXIA [None]
